FAERS Safety Report 7944574-2 (Version None)
Quarter: 2011Q4

REPORT INFORMATION
  Report Type: 
  Country: None (occurrence: None)
  Receive Date: 20111114
  Receipt Date: 20111004
  Transmission Date: 20120403
  Serious: No
  Sender: FDA-Public Use
  Company Number: 1000024466

PATIENT
  Age: 60 Year
  Sex: Female

DRUGS (6)
  1. SAVELLA [Suspect]
     Indication: FIBROMYALGIA
     Dosage: 6.25 MG (6.25 MG, 2 IN 1 D), ORAL; 12.5 MG (12.5 MG, 1 IN 1 D), ORAL
     Route: 048
     Dates: start: 20110101, end: 20110101
  2. SAVELLA [Suspect]
     Indication: FIBROMYALGIA
     Dosage: 12.5 MG (12.5 MG, 1 IN 1 D), ORAL
     Route: 048
     Dates: start: 20110401, end: 20110101
  3. VICOPROFEN (VICOPROFEN) (VICOPROFEN) [Concomitant]
  4. SAVELLA [Suspect]
     Indication: FIBROMYALGIA
     Dosage: 50 MG (25 MG, 2 IN 1 D), ORAL
     Route: 048
     Dates: start: 20110101, end: 20110901
  5. SIMVASTATIN [Concomitant]
  6. METOPROLOL SUCCINATE [Concomitant]

REACTIONS (3)
  - NAUSEA [None]
  - DRUG INEFFECTIVE [None]
  - VOMITING [None]
